FAERS Safety Report 8962245 (Version 1)
Quarter: 2012Q4

REPORT INFORMATION
  Report Type: 
  Country: US (occurrence: US)
  Receive Date: 20121212
  Receipt Date: 20121212
  Transmission Date: 20130627
  Serious: No
  Sender: FDA-Public Use
  Company Number: US-009507513-1212USA002661

PATIENT

DRUGS (3)
  1. COSOPT [Suspect]
     Dosage: UNK
     Dates: start: 201211
  2. ZIOPTAN [Concomitant]
  3. LOTEMAX [Concomitant]

REACTIONS (1)
  - Pain [Unknown]
